FAERS Safety Report 15993272 (Version 1)
Quarter: 2019Q1

REPORT INFORMATION
  Report Type: Spontaneous
  Country: GB (occurrence: GB)
  Receive Date: 20190222
  Receipt Date: 20190222
  Transmission Date: 20190418
  Serious: Yes (Death, Hospitalization, Disabling)
  Sender: FDA-Public Use
  Company Number: GB-CONCORDIA PHARMACEUTICALS INC.-E2B_00018719

PATIENT
  Age: 61 Year
  Sex: Male
  Weight: 140 kg

DRUGS (22)
  1. SODIUM CITRATE. [Concomitant]
     Active Substance: SODIUM CITRATE
  2. ALLOPURINOL. [Concomitant]
     Active Substance: ALLOPURINOL
  3. ORLISTAT. [Concomitant]
     Active Substance: ORLISTAT
  4. OMEPRAZOLE. [Concomitant]
     Active Substance: OMEPRAZOLE
  5. HYDROXOCOBALAMIN [Concomitant]
     Active Substance: HYDROXOCOBALAMIN
  6. CLENIL MODULITE [Concomitant]
     Active Substance: BECLOMETHASONE DIPROPIONATE
  7. FOLIC ACID. [Concomitant]
     Active Substance: FOLIC ACID
  8. PREDNISOLONE. [Suspect]
     Active Substance: PREDNISOLONE
     Indication: TEMPORAL ARTERITIS
     Route: 054
     Dates: start: 20180520, end: 20180821
  9. CLARITHROMYCIN. [Concomitant]
     Active Substance: CLARITHROMYCIN
  10. MOVICOL [Concomitant]
     Active Substance: POLYETHYLENE GLYCOL 3350\POTASSIUM CHLORIDE\SODIUM BICARBONATE\SODIUM CHLORIDE
  11. FLUOXETINE [Concomitant]
     Active Substance: FLUOXETINE HYDROCHLORIDE
  12. ATORVASTATIN [Concomitant]
     Active Substance: ATORVASTATIN
  13. ALFACALCIDOL [Concomitant]
     Active Substance: ALFACALCIDOL
  14. LEVOTHYROXINE. [Concomitant]
     Active Substance: LEVOTHYROXINE
  15. NOVOMIX [Concomitant]
     Active Substance: INSULIN ASPART
  16. SALBUTAMOL [Concomitant]
     Active Substance: ALBUTEROL
  17. CASSIA [Concomitant]
  18. CALCICHEW [Concomitant]
     Active Substance: CALCIUM CARBONATE
  19. FUROSEMIDE. [Concomitant]
     Active Substance: FUROSEMIDE
  20. PREGABALIN. [Concomitant]
     Active Substance: PREGABALIN
  21. RAMIPRIL. [Concomitant]
     Active Substance: RAMIPRIL
  22. FENTANYL. [Concomitant]
     Active Substance: FENTANYL

REACTIONS (3)
  - Myopathy [Fatal]
  - Sepsis [Fatal]
  - Muscular weakness [Fatal]

NARRATIVE: CASE EVENT DATE: 20180722
